FAERS Safety Report 9929099 (Version 1)
Quarter: 2014Q1

REPORT INFORMATION
  Report Type: Spontaneous
  Country: GB (occurrence: GB)
  Receive Date: 20140227
  Receipt Date: 20140227
  Transmission Date: 20141002
  Serious: Yes (Hospitalization)
  Sender: FDA-Public Use
  Company Number: GB-BRISTOL-MYERS SQUIBB COMPANY-20292975

PATIENT
  Sex: 0

DRUGS (1)
  1. FORXIGA [Suspect]

REACTIONS (2)
  - Urinary tract infection [Unknown]
  - Kidney infection [Unknown]
